FAERS Safety Report 9403628 (Version 3)
Quarter: 2014Q2

REPORT INFORMATION
  Report Type: Spontaneous
  Country: CA (occurrence: CA)
  Receive Date: 20130717
  Receipt Date: 20140407
  Transmission Date: 20141212
  Serious: Yes (Other)
  Sender: FDA-Public Use
  Company Number: CA-ROCHE-1247207

PATIENT
  Age: 68 Year
  Sex: Male

DRUGS (14)
  1. XOLAIR [Suspect]
     Route: 065
     Dates: start: 20130719
  2. ADVAIR [Concomitant]
  3. QVAR [Concomitant]
  4. SINGULAIR [Concomitant]
  5. VENTOLIN [Concomitant]
  6. XOLAIR [Suspect]
     Indication: ASTHMA
     Route: 058
     Dates: start: 20110727
  7. XOLAIR [Suspect]
     Route: 065
     Dates: start: 20130227
  8. XOLAIR [Suspect]
     Route: 065
     Dates: start: 20130313
  9. XOLAIR [Suspect]
     Route: 065
     Dates: start: 20130327
  10. XOLAIR [Suspect]
     Route: 065
     Dates: start: 20130410
  11. XOLAIR [Suspect]
     Route: 065
     Dates: start: 20130423
  12. XOLAIR [Suspect]
     Route: 065
     Dates: start: 20130523
  13. XOLAIR [Suspect]
     Route: 065
     Dates: start: 20130613
  14. XOLAIR [Suspect]
     Route: 065
     Dates: start: 20130702

REACTIONS (3)
  - Blood pressure systolic increased [Not Recovered/Not Resolved]
  - Influenza [Not Recovered/Not Resolved]
  - Middle insomnia [Not Recovered/Not Resolved]
